FAERS Safety Report 20450501 (Version 4)
Quarter: 2023Q1

REPORT INFORMATION
  Report Type: Spontaneous
  Country: BR (occurrence: BR)
  Receive Date: 20220209
  Receipt Date: 20230201
  Transmission Date: 20230417
  Serious: Yes (Other)
  Sender: FDA-Public Use
  Company Number: BR-BIOMARINAP-BR-2022-141372

PATIENT

DRUGS (2)
  1. LARONIDASE [Suspect]
     Active Substance: LARONIDASE
     Indication: Mucopolysaccharidosis I
     Dosage: 20 DF, QOW
     Route: 042
     Dates: start: 20091020, end: 2020
  2. LARONIDASE [Suspect]
     Active Substance: LARONIDASE
     Dosage: 20 DF, QOW
     Route: 042

REACTIONS (11)
  - Glaucoma [Recovering/Resolving]
  - Eye pain [Recovering/Resolving]
  - Intraocular pressure increased [Recovering/Resolving]
  - SARS-CoV-2 test positive [Recovering/Resolving]
  - Throat irritation [Unknown]
  - Pain [Unknown]
  - Oropharyngeal pain [Unknown]
  - Malaise [Recovering/Resolving]
  - Umbilical hernia [Recovering/Resolving]
  - Condition aggravated [Recovering/Resolving]
  - Inappropriate schedule of product administration [Unknown]

NARRATIVE: CASE EVENT DATE: 20091020
